FAERS Safety Report 8806498 (Version 2)
Quarter: 2012Q4

REPORT INFORMATION
  Report Type: 
  Country: US (occurrence: US)
  Receive Date: 20120925
  Receipt Date: 20121009
  Transmission Date: 20130627
  Serious: No
  Sender: FDA-Public Use
  Company Number: US-009507513-1209USA009767

PATIENT

DRUGS (1)
  1. HEXADROL TABLETS [Suspect]
     Indication: CHEMOTHERAPY
     Dosage: UNK
     Route: 064

REACTIONS (2)
  - Hyperbilirubinaemia [Unknown]
  - Foetal exposure during pregnancy [Recovered/Resolved]
